FAERS Safety Report 10475831 (Version 1)
Quarter: 2014Q3

REPORT INFORMATION
  Report Type: Spontaneous
  Country: US (occurrence: US)
  Receive Date: 20140925
  Receipt Date: 20140925
  Transmission Date: 20150326
  Serious: No
  Sender: FDA-Public Use
  Company Number: US-GLAXOSMITHKLINE-A1072641A

PATIENT
  Sex: Male

DRUGS (5)
  1. VIAGRA [Concomitant]
     Active Substance: SILDENAFIL CITRATE
  2. CONTRAST DYE [Suspect]
     Active Substance: UNSPECIFIED INGREDIENT
     Dates: start: 2013
  3. COREG [Suspect]
     Active Substance: CARVEDILOL
     Indication: HYPERTENSION
     Dosage: 6.25MG TWICE PER DAY
     Route: 048
     Dates: start: 200112
  4. ENALAPRIL [Suspect]
     Active Substance: ENALAPRIL
     Indication: HYPERTENSION
     Dosage: 20MG TWICE PER DAY
     Dates: start: 200112
  5. NORVASC [Suspect]
     Active Substance: AMLODIPINE BESYLATE
     Indication: HYPERTENSION
     Dosage: 5MG PER DAY
     Dates: start: 200112

REACTIONS (2)
  - Vasodilatation [Not Recovered/Not Resolved]
  - Erectile dysfunction [Unknown]

NARRATIVE: CASE EVENT DATE: 2007
